FAERS Safety Report 10774303 (Version 2)
Quarter: 2015Q1

REPORT INFORMATION
  Report Type: Report from Study
  Country: JP (occurrence: JP)
  Receive Date: 20150209
  Receipt Date: 20150316
  Transmission Date: 20150721
  Serious: Yes (Hospitalization, Other)
  Sender: FDA-Public Use
  Company Number: JP-ROCHE-1534481

PATIENT
  Age: 42 Year
  Sex: Male
  Weight: 67 kg

DRUGS (14)
  1. BEVACIZUMAB [Suspect]
     Active Substance: BEVACIZUMAB
     Indication: ANAPLASTIC ASTROCYTOMA
     Route: 041
     Dates: start: 20140424, end: 20140424
  2. BEVACIZUMAB [Suspect]
     Active Substance: BEVACIZUMAB
     Indication: ANAPLASTIC ASTROCYTOMA
     Route: 041
     Dates: start: 20140815, end: 20140815
  3. BEVACIZUMAB [Suspect]
     Active Substance: BEVACIZUMAB
     Indication: ANAPLASTIC ASTROCYTOMA
     Route: 041
     Dates: start: 20141002, end: 20141002
  4. BEVACIZUMAB [Suspect]
     Active Substance: BEVACIZUMAB
     Indication: ANAPLASTIC ASTROCYTOMA
     Route: 041
     Dates: start: 20140619, end: 20140619
  5. BEVACIZUMAB [Suspect]
     Active Substance: BEVACIZUMAB
     Indication: ANAPLASTIC ASTROCYTOMA
     Route: 041
     Dates: start: 20140731, end: 20140731
  6. RINDERON V [Concomitant]
     Active Substance: BETAMETHASONE VALERATE
     Indication: ANAPLASTIC ASTROCYTOMA
     Route: 048
     Dates: start: 20140904, end: 20141014
  7. BEVACIZUMAB [Suspect]
     Active Substance: BEVACIZUMAB
     Indication: ANAPLASTIC ASTROCYTOMA
     Route: 041
     Dates: start: 20140605, end: 20140605
  8. BEVACIZUMAB [Suspect]
     Active Substance: BEVACIZUMAB
     Indication: ANAPLASTIC ASTROCYTOMA
     Route: 041
     Dates: start: 20140508, end: 20140508
  9. BEVACIZUMAB [Suspect]
     Active Substance: BEVACIZUMAB
     Indication: ANAPLASTIC ASTROCYTOMA
     Route: 041
     Dates: start: 20140904, end: 20140904
  10. BEVACIZUMAB [Suspect]
     Active Substance: BEVACIZUMAB
     Indication: ANAPLASTIC ASTROCYTOMA
     Route: 041
     Dates: start: 20140918, end: 20140918
  11. TEMODAL [Concomitant]
     Active Substance: TEMOZOLOMIDE
     Indication: ANAPLASTIC ASTROCYTOMA
     Dosage: 28 FIVE TIMES/DAY
     Route: 048
     Dates: end: 20140908
  12. BEVACIZUMAB [Suspect]
     Active Substance: BEVACIZUMAB
     Indication: ANAPLASTIC ASTROCYTOMA
     Route: 041
     Dates: start: 20140522, end: 20140522
  13. BEVACIZUMAB [Suspect]
     Active Substance: BEVACIZUMAB
     Indication: ANAPLASTIC ASTROCYTOMA
     Route: 041
     Dates: start: 20140703, end: 20140703
  14. BEVACIZUMAB [Suspect]
     Active Substance: BEVACIZUMAB
     Indication: ANAPLASTIC ASTROCYTOMA
     Route: 041
     Dates: start: 20140717, end: 20140717

REACTIONS (2)
  - Epistaxis [Recovered/Resolved]
  - Pneumonia aspiration [Recovering/Resolving]

NARRATIVE: CASE EVENT DATE: 20141013
